FAERS Safety Report 6895082-1 (Version None)
Quarter: 2010Q3

REPORT INFORMATION
  Report Type: 
  Country: None (occurrence: None)
  Receive Date: 20100727
  Receipt Date: 20100713
  Transmission Date: 20110219
  Serious: Yes (Other)
  Sender: FDA-Public Use
  Company Number: 2010AP001285

PATIENT
  Age: 35 Year
  Sex: Female

DRUGS (4)
  1. FLUOXETINE HCL [Suspect]
     Dosage: 80 MG;QD
  2. ZUCLOPENTHIXOL (ZUCLOPENTHIXOL) [Suspect]
     Indication: PSYCHOTIC BEHAVIOUR
     Dosage: 100 MG;INJECT;IM;1X
     Route: 030
  3. QUETIAPINE [Suspect]
     Dosage: 1500 MG ; 100 MG;PRN
  4. NITRAZEPAM [Concomitant]

REACTIONS (6)
  - DRUG INTERACTION [None]
  - DYSPNOEA [None]
  - DYSTONIA [None]
  - MUSCLE TWITCHING [None]
  - OVERDOSE [None]
  - STRIDOR [None]
